FAERS Safety Report 8344534-6 (Version None)
Quarter: 2012Q2

REPORT INFORMATION
  Report Type: 
  Country: None (occurrence: None)
  Receive Date: 20120508
  Receipt Date: 20120423
  Transmission Date: 20120825
  Serious: Yes (Other)
  Sender: FDA-Public Use
  Company Number: BR-ROCHE-1063778

PATIENT
  Age: 46 Year
  Sex: Male

DRUGS (12)
  1. TENOFOVIR [Concomitant]
     Indication: HEPATITIS C
     Route: 065
  2. TENOFOVIR [Concomitant]
     Indication: HIV INFECTION
  3. FUZEON [Suspect]
     Indication: HIV INFECTION
  4. RITONAVIR [Concomitant]
     Indication: HEPATITIS C
     Route: 065
  5. LAMIVUDINE [Concomitant]
     Indication: HIV INFECTION
  6. DARUNAVIR HYDRATE [Concomitant]
     Indication: HEPATITIS C
     Route: 065
  7. FUZEON [Suspect]
     Indication: HEPATITIS C
     Route: 058
  8. RALTEGRAVIR [Concomitant]
     Indication: HEPATITIS C
     Route: 065
  9. LAMIVUDINE [Concomitant]
     Indication: HEPATITIS C
     Route: 065
  10. RITONAVIR [Concomitant]
     Indication: HIV INFECTION
  11. DARUNAVIR HYDRATE [Concomitant]
     Indication: HIV INFECTION
  12. RALTEGRAVIR [Concomitant]
     Indication: HIV INFECTION

REACTIONS (1)
  - DEPENDENCE [None]
